FAERS Safety Report 4907210-5 (Version None)
Quarter: 2006Q1

REPORT INFORMATION
  Report Type: 
  Country: None (occurrence: None)
  Receive Date: 20060207
  Receipt Date: 20060124
  Transmission Date: 20060701
  Serious: Yes (Other)
  Sender: FDA-Public Use
  Company Number: US200601001522

PATIENT
  Age: 62 Year
  Sex: Female
  Weight: 68.9 kg

DRUGS (5)
  1. GEMZAR [Suspect]
     Indication: OVARIAN CANCER
     Dosage: SEE IMAGE
     Route: 042
     Dates: start: 20050930, end: 20051028
  2. GEMZAR [Suspect]
     Indication: OVARIAN CANCER
     Dosage: SEE IMAGE
     Route: 042
     Dates: start: 20051028, end: 20051209
  3. GEMZAR [Suspect]
     Indication: OVARIAN CANCER
     Dosage: SEE IMAGE
     Route: 042
     Dates: start: 20051209, end: 20051230
  4. GEMZAR [Suspect]
     Indication: OVARIAN CANCER
     Dosage: SEE IMAGE
     Route: 042
     Dates: start: 20051230, end: 20051230
  5. CISPLATIN [Concomitant]

REACTIONS (2)
  - CELLULITIS [None]
  - CYANOSIS [None]
